FAERS Safety Report 10360040 (Version 1)
Quarter: 2014Q3

REPORT INFORMATION
  Report Type: Spontaneous
  Country: US (occurrence: US)
  Receive Date: 20140804
  Receipt Date: 20140804
  Transmission Date: 20150326
  Serious: No
  Sender: FDA-Public Use
  Company Number: US-ASTRAZENECA-2014SE54103

PATIENT
  Age: 956 Month
  Sex: Female
  Weight: 80.7 kg

DRUGS (6)
  1. LOSARTAN [Concomitant]
     Active Substance: LOSARTAN
     Indication: BLOOD PRESSURE ABNORMAL
     Route: 048
     Dates: start: 201406
  2. METOPROLOL SUCCINATE. [Suspect]
     Active Substance: METOPROLOL SUCCINATE
     Indication: HYPERTENSION
     Route: 048
     Dates: start: 201405, end: 20140721
  3. DAPSONE. [Concomitant]
     Active Substance: DAPSONE
     Indication: SKIN DISORDER
     Route: 048
     Dates: start: 201407
  4. XARELTO [Concomitant]
     Active Substance: RIVAROXABAN
     Indication: ANTICOAGULANT THERAPY
     Route: 048
     Dates: start: 201406
  5. TIKOSYN [Concomitant]
     Active Substance: DOFETILIDE
     Indication: CARDIAC DISORDER
     Route: 048
     Dates: start: 20140609
  6. AMLODIPINE [Concomitant]
     Active Substance: AMLODIPINE BESYLATE
     Indication: HYPERTENSION
     Route: 048
     Dates: start: 201406

REACTIONS (5)
  - Sensation of foreign body [Unknown]
  - Drug dose omission [Unknown]
  - Linear IgA disease [Unknown]
  - Intentional product misuse [Unknown]
  - Product size issue [Unknown]

NARRATIVE: CASE EVENT DATE: 201405
